FAERS Safety Report 14377787 (Version 2)
Quarter: 2018Q1

REPORT INFORMATION
  Report Type: Spontaneous
  Country: US (occurrence: US)
  Receive Date: 20180111
  Receipt Date: 20180124
  Transmission Date: 20180509
  Serious: Yes (Death, Hospitalization)
  Sender: FDA-Public Use
  Company Number: US-SAOL THERAPEUTICS-2017SAO03492

PATIENT
  Age: 19 Year
  Sex: Female
  Weight: 68.93 kg

DRUGS (16)
  1. TEMODAR [Concomitant]
     Active Substance: TEMOZOLOMIDE
  2. ENALAPRIL [Concomitant]
     Active Substance: ENALAPRIL
  3. NEURONTIN [Concomitant]
     Active Substance: GABAPENTIN
  4. THE MAGIC BULLET [Concomitant]
     Active Substance: BISACODYL
  5. BACLOFEN. [Suspect]
     Active Substance: BACLOFEN
     Indication: QUADRIPLEGIA
     Dosage: 220.2 UNK, \DAY
     Route: 037
     Dates: start: 20171208
  6. BACTRIM [Concomitant]
     Active Substance: SULFAMETHOXAZOLE\TRIMETHOPRIM
  7. KYTRIL [Concomitant]
     Active Substance: GRANISETRON HYDROCHLORIDE
  8. DULERA [Concomitant]
     Active Substance: FORMOTEROL FUMARATE DIHYDRATE\MOMETASONE FUROATE
  9. PERIACTIN [Concomitant]
     Active Substance: CYPROHEPTADINE HYDROCHLORIDE
  10. LIORESAL [Concomitant]
     Active Substance: BACLOFEN
  11. BACLOFEN. [Suspect]
     Active Substance: BACLOFEN
     Indication: MUSCLE SPASTICITY
     Dosage: UNK
     Route: 037
     Dates: start: 20170217
  12. COLACE [Concomitant]
     Active Substance: DOCUSATE SODIUM
  13. ZANTAC [Concomitant]
     Active Substance: RANITIDINE HYDROCHLORIDE
  14. ADVAIR HFA [Concomitant]
     Active Substance: FLUTICASONE PROPIONATE\SALMETEROL XINAFOATE
  15. DEPO-PROVERA [Concomitant]
     Active Substance: MEDROXYPROGESTERONE ACETATE
  16. BACTROBAN [Concomitant]
     Active Substance: MUPIROCIN\MUPIROCIN CALCIUM

REACTIONS (7)
  - Pyrexia [Unknown]
  - Cardiac failure [Fatal]
  - Multiple organ dysfunction syndrome [Fatal]
  - Enterovirus myocarditis [Fatal]
  - Pancytopenia [Unknown]
  - Headache [Unknown]
  - Septic shock [Fatal]

NARRATIVE: CASE EVENT DATE: 20171028
